FAERS Safety Report 20310374 (Version 1)
Quarter: 2022Q1

REPORT INFORMATION
  Report Type: Spontaneous
  Country: CA (occurrence: CA)
  Receive Date: 20220107
  Receipt Date: 20220107
  Transmission Date: 20220423
  Serious: Yes (Hospitalization, Disabling, Other)
  Sender: FDA-Public Use
  Company Number: None

PATIENT
  Age: 68 Year
  Sex: Female
  Weight: 41 kg

DRUGS (10)
  1. FLUOROURACIL [Suspect]
     Active Substance: FLUOROURACIL
     Indication: Rectal cancer metastatic
     Dosage: SOLUTION INTRAVENOUS, BULK VIAL
     Route: 042
  2. ESTRADIOL [Concomitant]
     Active Substance: ESTRADIOL
  3. FOLIC ACID [Concomitant]
     Active Substance: FOLIC ACID
  4. K-DUR [Concomitant]
     Active Substance: POTASSIUM CHLORIDE
  5. METOCLOPRAMIDE [Concomitant]
     Active Substance: METOCLOPRAMIDE
  6. OXALIPLATIN [Concomitant]
     Active Substance: OXALIPLATIN
  7. PANTOPRAZOLE SODIUM [Concomitant]
     Active Substance: PANTOPRAZOLE SODIUM
  8. PROGESTERONE [Concomitant]
     Active Substance: PROGESTERONE
     Dosage: LIQUID INTRAMUSCULAR
  9. SYNTHROID [Concomitant]
     Active Substance: LEVOTHYROXINE SODIUM
  10. VITAMIN D [Concomitant]
     Active Substance: VITAMIN D NOS

REACTIONS (11)
  - Bacterial test positive [Unknown]
  - Colitis [Unknown]
  - Escherichia test positive [Unknown]
  - Febrile neutropenia [Unknown]
  - Hyponatraemia [Unknown]
  - Klebsiella test positive [Unknown]
  - Malnutrition [Unknown]
  - Mucosal inflammation [Unknown]
  - Oral candidiasis [Unknown]
  - Pancytopenia [Unknown]
  - Toxicity to various agents [Unknown]
